FAERS Safety Report 12874632 (Version 2)
Quarter: 2016Q4

REPORT INFORMATION
  Report Type: Spontaneous
  Country: MX (occurrence: MX)
  Receive Date: 20161021
  Receipt Date: 20161025
  Transmission Date: 20170207
  Serious: Yes (Hospitalization)
  Sender: FDA-Public Use
  Company Number: MX-ASTRAZENECA-2016SF09212

PATIENT
  Age: 27315 Day
  Sex: Female

DRUGS (15)
  1. CLONAZEPAM. [Suspect]
     Active Substance: CLONAZEPAM
     Route: 065
  2. NIFEDIPINE. [Concomitant]
     Active Substance: NIFEDIPINE
     Indication: HYPERTENSION
     Route: 048
  3. CITICOLINE [Suspect]
     Active Substance: CITICOLINE
     Route: 065
  4. PASSIFLORA INCARNATE [Concomitant]
     Indication: INSOMNIA
     Route: 048
  5. AZAPENTACENO POLISULFONATO [Concomitant]
     Indication: GLAUCOMA
     Route: 047
  6. VALERIANA OFFICINALIS ROOT [Concomitant]
     Active Substance: VALERIAN
     Indication: INSOMNIA
     Route: 048
     Dates: start: 20140730
  7. DICLOFENAC [Concomitant]
     Active Substance: DICLOFENAC
     Indication: OSTEOARTHRITIS
     Route: 048
     Dates: start: 20150925
  8. OMEPRAZOLE. [Concomitant]
     Active Substance: OMEPRAZOLE
     Indication: PROPHYLAXIS AGAINST GASTROINTESTINAL ULCER
     Route: 048
     Dates: start: 20140415, end: 20160923
  9. IGNATIA AMARA [Concomitant]
     Indication: INSOMNIA
     Route: 048
  10. PHENYTOIN. [Suspect]
     Active Substance: PHENYTOIN
     Route: 065
  11. ACETYLSALICYLIC ACID / CLOPIDOGREL [Suspect]
     Active Substance: ASPIRIN\CLOPIDOGREL BISULFATE
     Route: 065
  12. CHLORTHALIDONE. [Concomitant]
     Active Substance: CHLORTHALIDONE
     Indication: HYPERTENSION
     Route: 048
  13. BIMATOPROST. [Concomitant]
     Active Substance: BIMATOPROST
     Indication: GLAUCOMA
     Route: 047
  14. EZETIMIBE / SIMVASTATIN [Suspect]
     Active Substance: EZETIMIBE\SIMVASTATIN
     Route: 065
  15. DAPAGLIFLOZIN CODE NOT BROKEN [Suspect]
     Active Substance: DAPAGLIFLOZIN
     Indication: TYPE 2 DIABETES MELLITUS
     Route: 048
     Dates: start: 20140430

REACTIONS (1)
  - Gastritis [Recovered/Resolved]

NARRATIVE: CASE EVENT DATE: 20160923
